FAERS Safety Report 7395740-9 (Version None)
Quarter: 2011Q2

REPORT INFORMATION
  Report Type: 
  Country: None (occurrence: None)
  Receive Date: 20110405
  Receipt Date: 20110304
  Transmission Date: 20111010
  Serious: Yes (Death, Life-Threatening, Hospitalization)
  Sender: FDA-Public Use
  Company Number: NL-BAYER-2011-019696

PATIENT
  Sex: Female

DRUGS (1)
  1. GADOVIST 1,0 MMOL/ML [Suspect]
     Indication: NUCLEAR MAGNETIC RESONANCE IMAGING
     Dosage: UNK
     Dates: start: 20110303, end: 20110303

REACTIONS (4)
  - HEADACHE [None]
  - PHARYNGEAL OEDEMA [None]
  - DEATH [None]
  - CIRCULATORY COLLAPSE [None]
